FAERS Safety Report 7692142-2 (Version None)
Quarter: 2011Q3

REPORT INFORMATION
  Report Type: 
  Country: None (occurrence: None)
  Receive Date: 20110818
  Receipt Date: 20110809
  Transmission Date: 20111222
  Serious: Yes (Other)
  Sender: FDA-Public Use
  Company Number: US-ASTRAZENECA-2011SE44811

PATIENT
  Sex: Male

DRUGS (1)
  1. CRESTOR [Suspect]
     Route: 048

REACTIONS (7)
  - STRESS [None]
  - BLOOD CHOLESTEROL INCREASED [None]
  - FALL [None]
  - DRUG DOSE OMISSION [None]
  - BLOOD CHOLESTEROL ABNORMAL [None]
  - MYOCARDIAL INFARCTION [None]
  - CHEST PAIN [None]
